FAERS Safety Report 20495914 (Version 1)
Quarter: 2022Q1

REPORT INFORMATION
  Report Type: Report from Study
  Country: US (occurrence: US)
  Receive Date: 20220221
  Receipt Date: 20220221
  Transmission Date: 20220423
  Serious: Yes (Other)
  Sender: FDA-Public Use
  Company Number: US-GLAXOSMITHKLINE-US2022016925

PATIENT
  Sex: Female

DRUGS (1)
  1. BELANTAMAB MAFODOTIN [Suspect]
     Active Substance: BELANTAMAB MAFODOTIN
     Indication: Plasma cell myeloma
     Dosage: UNK
     Dates: start: 20211020

REACTIONS (12)
  - Punctate keratitis [Unknown]
  - Visual impairment [Unknown]
  - Eye symptom [Unknown]
  - Visual acuity reduced [Recovered/Resolved]
  - Keratopathy [Recovered/Resolved]
  - Pain [Unknown]
  - Eye disorder [Unknown]
  - Conjunctivitis [Unknown]
  - Night blindness [Recovered/Resolved]
  - Photophobia [Recovered/Resolved]
  - Dry eye [Recovered/Resolved]
  - Foreign body sensation in eyes [Recovered/Resolved]

NARRATIVE: CASE EVENT DATE: 20210101
